FAERS Safety Report 18654229 (Version 2)
Quarter: 2020Q4

REPORT INFORMATION
  Report Type: Spontaneous
  Country: DE (occurrence: DE)
  Receive Date: 20201223
  Receipt Date: 20201225
  Transmission Date: 20210114
  Serious: Yes (Hospitalization)
  Sender: FDA-Public Use
  Company Number: DE-TEVA-2020-DE-1860052

PATIENT
  Age: 84 Year
  Sex: Female

DRUGS (10)
  1. DIGITOXIN [Suspect]
     Active Substance: DIGITOXIN
     Dosage: .07 MILLIGRAM DAILY; 0.07 MG, 1-0-0-0
  2. METFORMIN [Concomitant]
     Active Substance: METFORMIN HYDROCHLORIDE
     Dosage: 1700 MILLIGRAM DAILY; 850 MG, 1-0-1-0
  3. EISEN(II) [Concomitant]
     Dosage: 100 MILLIGRAM DAILY; 1-0-0-0
  4. URAPIDIL [Concomitant]
     Active Substance: URAPIDIL
     Dosage: 4 DOSAGE FORMS DAILY; 30 MG, 2-0-2-0
  5. RAMIPRIL. [Concomitant]
     Active Substance: RAMIPRIL
     Dosage: 10 MILLIGRAM DAILY; 1-0-0-0
  6. APIXABAN [Concomitant]
     Active Substance: APIXABAN
     Dosage: 5 MILLIGRAM DAILY; 2.5 MG, 1-0-1-0
  7. FUROSEMID [Suspect]
     Active Substance: FUROSEMIDE
     Dosage: 40 MG, 1X AS NEEDED
  8. NITRENDIPIN [Concomitant]
     Active Substance: NITRENDIPINE
     Dosage: 20 MILLIGRAM DAILY; 10 MG, 1-0-0-1
  9. TIOTROPIUMBROMID [Concomitant]
     Dosage: 2 DOSAGE FORMS DAILY; 2.5 MICROGRAM, 2-0-0-0
     Route: 055
  10. METOPROLOL. [Suspect]
     Active Substance: METOPROLOL
     Dosage: 190 MILLIGRAM DAILY; 95 MG, 1-0-1-0

REACTIONS (3)
  - Haematoma [Unknown]
  - Fall [Unknown]
  - Syncope [Unknown]
